FAERS Safety Report 9137852 (Version 1)
Quarter: 2013Q1

REPORT INFORMATION
  Report Type: Report from Study
  Country: FR (occurrence: FR)
  Receive Date: 20130304
  Receipt Date: 20130304
  Transmission Date: 20140127
  Serious: Yes (Death, Hospitalization)
  Sender: FDA-Public Use
  Company Number: FR-PFIZER INC-2013055801

PATIENT
  Age: 77 Year
  Sex: Female

DRUGS (9)
  1. BLINDED NO SUBJECT DRUG [Suspect]
     Indication: RENAL CELL CARCINOMA
     Dosage: CYCLIC, SCHEDULE 4/2
     Route: 048
     Dates: start: 20100107, end: 20100901
  2. BLINDED PLACEBO [Suspect]
     Indication: RENAL CELL CARCINOMA
     Dosage: CYCLIC, SCHEDULE 4/2
     Route: 048
     Dates: start: 20100107, end: 20100901
  3. BLINDED PLACEBO [Suspect]
     Indication: RENAL CELL CARCINOMA
     Dosage: CYCLIC, SCHEDULE 4/2
     Route: 048
     Dates: start: 20100107, end: 20100901
  4. SUNITINIB MALATE [Suspect]
     Indication: RENAL CELL CARCINOMA
     Dosage: CYCLIC, SCHEDULE 4/2
     Route: 048
     Dates: start: 20100107, end: 20100901
  5. SUNITINIB MALATE [Suspect]
     Indication: RENAL CELL CARCINOMA
     Dosage: CYCLIC, SCHEDULE 4/2
     Route: 048
     Dates: start: 20100107, end: 20100901
  6. SUTENT [Suspect]
     Indication: METASTATIC RENAL CELL CARCINOMA
     Dosage: 37.5 MG, 1X/DAY
     Route: 048
     Dates: start: 20120830
  7. ARIXTRA [Suspect]
     Indication: PULMONARY EMBOLISM
     Dosage: 7.5 MG, 1X/DAY
     Route: 058
     Dates: start: 201211
  8. LODOZ [Concomitant]
     Indication: HYPERTENSION
     Dosage: 10 MG (WHEN SUNITINIB MALATE ON) OR 5 MG (WHEN SUNITINIB MALATE OFF), 1X/DAY
     Route: 048
     Dates: start: 201211
  9. LEVOTHYROX [Concomitant]
     Indication: HYPOTHYROIDISM
     Dosage: 50 UG, 1X/DAY
     Route: 048
     Dates: start: 20121024

REACTIONS (3)
  - Subdural haematoma [Fatal]
  - Brain oedema [Fatal]
  - Intraventricular haemorrhage [Fatal]
